FAERS Safety Report 6196289-1 (Version None)
Quarter: 2009Q2

REPORT INFORMATION
  Report Type: 
  Country: None (occurrence: None)
  Receive Date: 20090520
  Receipt Date: 20090513
  Transmission Date: 20091009
  Serious: Yes (Life-Threatening, Other)
  Sender: FDA-Public Use
  Company Number: AU-TYCO HEALTHCARE/MALLINCKRODT-T200901039

PATIENT

DRUGS (1)
  1. OPTIRAY 300 [Suspect]
     Dosage: UNK, SINGLE
     Dates: start: 20090507, end: 20090507

REACTIONS (1)
  - ANAPHYLACTIC REACTION [None]
